FAERS Safety Report 20722165 (Version 1)
Quarter: 2022Q2

REPORT INFORMATION
  Report Type: Spontaneous
  Country: US (occurrence: US)
  Receive Date: 20220418
  Receipt Date: 20220418
  Transmission Date: 20220720
  Serious: Yes (Other)
  Sender: FDA-Public Use
  Company Number: US-009507513-2204USA004783

PATIENT
  Sex: Female

DRUGS (1)
  1. KEYTRUDA [Suspect]
     Active Substance: PEMBROLIZUMAB
     Indication: Lung neoplasm malignant
     Dosage: UNK
     Dates: start: 202111, end: 202204

REACTIONS (2)
  - Rectal haemorrhage [Unknown]
  - Haematochezia [Unknown]

NARRATIVE: CASE EVENT DATE: 20220401
